FAERS Safety Report 15357136 (Version 2)
Quarter: 2018Q3

REPORT INFORMATION
  Report Type: Spontaneous
  Country: BR (occurrence: BR)
  Receive Date: 20180906
  Receipt Date: 20180927
  Transmission Date: 20181010
  Serious: Yes (Other)
  Sender: FDA-Public Use
  Company Number: PHHY2018BR089170

PATIENT
  Sex: Female
  Weight: 48 kg

DRUGS (1)
  1. RITALINA [Suspect]
     Active Substance: METHYLPHENIDATE HYDROCHLORIDE
     Indication: POOR QUALITY SLEEP
     Dosage: 2 DF, TID (2 TABLETS IN THE MORNING, 2 AT NOON AND 2 IN THE AFTERNOON)
     Route: 048

REACTIONS (3)
  - Somnolence [Recovering/Resolving]
  - Terminal insomnia [Recovering/Resolving]
  - Loss of consciousness [Recovering/Resolving]
